FAERS Safety Report 9804953 (Version 3)
Quarter: 2014Q1

REPORT INFORMATION
  Report Type: Spontaneous
  Country: US (occurrence: US)
  Receive Date: 20140109
  Receipt Date: 20140203
  Transmission Date: 20141002
  Serious: Yes (Hospitalization)
  Sender: FDA-Public Use
  Company Number: US-BAXTER-2014BAX000392

PATIENT
  Age: 58 Year
  Sex: Male

DRUGS (6)
  1. DIANEAL LOW CALCIUM [Suspect]
     Indication: RENAL FAILURE CHRONIC
     Route: 033
     Dates: start: 2011, end: 20131231
  2. DIANEAL LOW CALCIUM [Suspect]
     Route: 033
     Dates: start: 20140101
  3. DIANEAL LOW CALCIUM [Suspect]
     Indication: RENAL FAILURE CHRONIC
     Route: 033
     Dates: start: 2011, end: 20131231
  4. DIANEAL LOW CALCIUM [Suspect]
     Route: 033
     Dates: start: 20140101
  5. DIANEAL LOW CALCIUM [Suspect]
     Indication: RENAL FAILURE CHRONIC
     Route: 033
     Dates: start: 2011, end: 20131231
  6. DIANEAL LOW CALCIUM [Suspect]
     Route: 033
     Dates: start: 20140101

REACTIONS (1)
  - Fluid retention [Unknown]
